FAERS Safety Report 22128281 (Version 1)
Quarter: 2023Q1

REPORT INFORMATION
  Report Type: Spontaneous
  Country: IT (occurrence: IT)
  Receive Date: 20230323
  Receipt Date: 20230323
  Transmission Date: 20230418
  Serious: Yes (Other)
  Sender: FDA-Public Use
  Company Number: IT-TEVA-2023-IT-2868425

PATIENT
  Age: 69 Year
  Sex: Male

DRUGS (3)
  1. PREDNISONE [Suspect]
     Active Substance: PREDNISONE
     Indication: VEXAS syndrome
     Route: 065
  2. ANAKINRA [Suspect]
     Active Substance: ANAKINRA
     Indication: VEXAS syndrome
     Route: 065
  3. TOCILIZUMAB [Suspect]
     Active Substance: TOCILIZUMAB
     Indication: VEXAS syndrome
     Route: 065

REACTIONS (3)
  - Severe cutaneous adverse reaction [Unknown]
  - Neutropenia [Unknown]
  - Rebound effect [Unknown]
